FAERS Safety Report 6170514-5 (Version None)
Quarter: 2009Q2

REPORT INFORMATION
  Report Type: 
  Country: None (occurrence: None)
  Receive Date: 20090427
  Receipt Date: 20090427
  Transmission Date: 20091009
  Serious: No
  Sender: FDA-Public Use
  Company Number: None

PATIENT
  Age: 47 Year
  Sex: Male
  Weight: 80 kg

DRUGS (9)
  1. HYPERTONIC DEXTROSE [Suspect]
     Indication: INTRACRANIAL PRESSURE INCREASED
     Dosage: 50-100 ML/HR
     Dates: start: 20090125
  2. FLUDROCORTISONE [Concomitant]
  3. SENNA [Concomitant]
  4. PHENYTOIN [Concomitant]
  5. RANITIDINE [Concomitant]
  6. PHENYLEPHRINE [Concomitant]
  7. FENTANYL [Concomitant]
  8. NOREPI [Concomitant]
  9. CISATRACURIUM [Concomitant]

REACTIONS (3)
  - BLOOD SODIUM INCREASED [None]
  - BRAIN DEATH [None]
  - DIABETES INSIPIDUS [None]
